FAERS Safety Report 21491483 (Version 1)
Quarter: 2022Q4

REPORT INFORMATION
  Report Type: Spontaneous
  Country: US (occurrence: US)
  Receive Date: 20221021
  Receipt Date: 20221021
  Transmission Date: 20230113
  Serious: Yes (Hospitalization, Other)
  Sender: FDA-Public Use
  Company Number: US-ELI_LILLY_AND_COMPANY-US202210004813

PATIENT
  Age: 51 Year
  Sex: Female

DRUGS (3)
  1. PEMETREXED [Suspect]
     Active Substance: PEMETREXED
     Indication: Lung adenocarcinoma
     Dosage: UNK, FOUR CYCLES
     Route: 065
     Dates: start: 202003, end: 202005
  2. PEMETREXED [Suspect]
     Active Substance: PEMETREXED
     Dosage: UNK, CYCLICAL
     Route: 065
     Dates: end: 202105
  3. CISPLATIN [Concomitant]
     Active Substance: CISPLATIN
     Indication: Lung adenocarcinoma
     Dosage: UNK, FOUR CYCLES
     Route: 065
     Dates: start: 202003, end: 202005

REACTIONS (4)
  - Acute respiratory failure [Not Recovered/Not Resolved]
  - Pulmonary toxicity [Unknown]
  - Pneumonitis [Unknown]
  - Pneumonia bacterial [Not Recovered/Not Resolved]

NARRATIVE: CASE EVENT DATE: 20210501
